FAERS Safety Report 24232603 (Version 1)
Quarter: 2024Q3

REPORT INFORMATION
  Report Type: Spontaneous
  Country: GB (occurrence: GB)
  Receive Date: 20240821
  Receipt Date: 20240821
  Transmission Date: 20241016
  Serious: Yes (Other)
  Sender: ACCORD
  Company Number: None

PATIENT
  Age: 61 Year
  Sex: Female

DRUGS (30)
  1. SPIRONOLACTONE [Suspect]
     Active Substance: SPIRONOLACTONE
     Indication: Oedema
     Dosage: 25 MG OM
     Dates: start: 20240807, end: 20240809
  2. ASPIRIN [Concomitant]
     Active Substance: ASPIRIN
  3. CYCLIZINE [Concomitant]
     Active Substance: CYCLIZINE
  4. DALTEPARIN [Concomitant]
     Active Substance: DALTEPARIN
  5. DOCUSATE [Concomitant]
     Active Substance: DOCUSATE
  6. FOLIC ACID [Concomitant]
     Active Substance: FOLIC ACID
  7. FUROSEMIDE [Concomitant]
     Active Substance: FUROSEMIDE
  8. GABAPENTIN [Concomitant]
     Active Substance: GABAPENTIN
  9. LACTULOSE [Concomitant]
     Active Substance: LACTULOSE
  10. LANSOPRAZOLE [Concomitant]
     Active Substance: LANSOPRAZOLE
  11. LANTUS [Concomitant]
     Active Substance: INSULIN GLARGINE
  12. LIDOCAINE [Concomitant]
     Active Substance: LIDOCAINE
  13. MEROPENEM [Concomitant]
     Active Substance: MEROPENEM
  14. NICOTINE [Concomitant]
     Active Substance: NICOTINE
  15. ONDANSETRON [Concomitant]
     Active Substance: ONDANSETRON
  16. OXYCODONE HYDROCHLORIDE [Concomitant]
     Active Substance: OXYCODONE HYDROCHLORIDE
  17. MELATONIN [Concomitant]
     Active Substance: MELATONIN
  18. LOPERAMIDE [Concomitant]
     Active Substance: LOPERAMIDE
  19. ACETAMINOPHEN [Concomitant]
     Active Substance: ACETAMINOPHEN
  20. SANDO-K [Concomitant]
  21. SENNA [Concomitant]
     Active Substance: SENNA LEAF\SENNOSIDES\SENNOSIDES A AND B
  22. SODIUM BICARBONATE [Concomitant]
     Active Substance: SODIUM BICARBONATE
  23. TEICOPLANIN [Concomitant]
     Active Substance: TEICOPLANIN
  24. COSYNTROPIN HEXAACETATE [Concomitant]
     Active Substance: COSYNTROPIN HEXAACETATE
     Dates: start: 20240803, end: 20240803
  25. CASPOFUNGIN [Concomitant]
     Active Substance: CASPOFUNGIN
     Dates: end: 20240731
  26. COTRIMOXAZOLE [Concomitant]
     Active Substance: SULFAMETHOXAZOLE\TRIMETHOPRIM
     Dates: end: 20240724
  27. CIPROFLOXACIN [Concomitant]
     Active Substance: CIPROFLOXACIN
     Dates: end: 20240801
  28. FLUCLOXACILLIN [Concomitant]
     Active Substance: FLUCLOXACILLIN
     Dates: end: 20240724
  29. HYDROCORTONE [Concomitant]
     Active Substance: HYDROCORTISONE
     Dates: end: 20240803
  30. OMEPRAZOLE [Concomitant]
     Active Substance: OMEPRAZOLE
     Dates: end: 20240730

REACTIONS (4)
  - Rash [Unknown]
  - Skin warm [Unknown]
  - Pain in extremity [Unknown]
  - Skin exfoliation [Unknown]

NARRATIVE: CASE EVENT DATE: 20240809
